FAERS Safety Report 8801482 (Version 2)
Quarter: 2015Q2

REPORT INFORMATION
  Report Type: Report from Study
  Country: US (occurrence: US)
  Receive Date: 20120921
  Receipt Date: 20150626
  Transmission Date: 20150821
  Serious: Yes (Death, Hospitalization)
  Sender: FDA-Public Use
  Company Number: US-ROCHE-CID000000002105056

PATIENT
  Age: 59 Year
  Sex: Male

DRUGS (12)
  1. AVASTIN [Suspect]
     Active Substance: BEVACIZUMAB
     Indication: OESOPHAGEAL CARCINOMA
     Route: 042
     Dates: start: 20080709
  2. DECADRON [Concomitant]
     Active Substance: DEXAMETHASONE
     Route: 042
  3. COMPAZINE [Concomitant]
     Active Substance: PROCHLORPERAZINE MALEATE
  4. 5-FLUOROURACIL [Concomitant]
     Active Substance: FLUOROURACIL
     Dosage: ON DAY 1, DAY 2
     Route: 042
  5. ALOXI [Concomitant]
     Active Substance: PALONOSETRON HYDROCHLORIDE
     Route: 042
  6. MEGACE [Concomitant]
     Active Substance: MEGESTROL ACETATE
     Route: 048
  7. OXALIPLATIN. [Suspect]
     Active Substance: OXALIPLATIN
     Indication: PRODUCT USED FOR UNKNOWN INDICATION
     Route: 042
  8. LEUCOVORIN [Concomitant]
     Active Substance: LEUCOVORIN
     Route: 042
  9. ATIVAN [Concomitant]
     Active Substance: LORAZEPAM
     Route: 042
  10. LEVAQUIN [Concomitant]
     Active Substance: LEVOFLOXACIN
  11. FENTANYL. [Concomitant]
     Active Substance: FENTANYL
     Route: 065
  12. PHENERGAN [Concomitant]
     Active Substance: PROMETHAZINE HYDROCHLORIDE

REACTIONS (19)
  - Pyrexia [Unknown]
  - Fall [Unknown]
  - Skin abrasion [Unknown]
  - Dehydration [Unknown]
  - Weight decreased [Unknown]
  - Dysphagia [Unknown]
  - Malnutrition [Unknown]
  - Fatigue [Unknown]
  - Flank pain [Unknown]
  - Death [Fatal]
  - Nausea [Unknown]
  - Vomiting [Unknown]
  - Ataxia [Unknown]
  - Neuropathy peripheral [Unknown]
  - Confusional state [Unknown]
  - Off label use [Unknown]
  - Disease progression [Unknown]
  - Paraesthesia [Unknown]
  - Malaise [Unknown]

NARRATIVE: CASE EVENT DATE: 20080927
